FAERS Safety Report 22993809 (Version 2)
Quarter: 2023Q4

REPORT INFORMATION
  Report Type: Report from Study
  Country: GB (occurrence: GB)
  Receive Date: 20230927
  Receipt Date: 20231018
  Transmission Date: 20240110
  Serious: Yes (Life-Threatening, Other)
  Sender: FDA-Public Use
  Company Number: GB-002147023-PHHO2018GB000965

PATIENT
  Sex: Male
  Weight: 91 kg

DRUGS (32)
  1. AZACITIDINE [Suspect]
     Active Substance: AZACITIDINE
     Indication: Acute myeloid leukaemia
     Dosage: 145 MG, QD
     Route: 058
     Dates: start: 20171219
  2. ABELCET [Concomitant]
     Active Substance: AMPHOTERICIN B\DIMYRISTOYLPHOSPHATIDYLCHOLINE, DL-\DIMYRISTOYLPHOSPHATIDYLGLYCEROL, DL-
     Indication: Prophylaxis
     Dosage: 100 MG, QD
     Route: 041
     Dates: start: 20180101, end: 20180108
  3. ACYCLOVIR [Concomitant]
     Active Substance: ACYCLOVIR
     Indication: Infection
     Dosage: 400 MG, BID
     Route: 041
     Dates: start: 20171219, end: 20180109
  4. ACYCLOVIR [Concomitant]
     Active Substance: ACYCLOVIR
     Indication: Prophylaxis
     Dosage: 700 MG, TID
     Route: 041
     Dates: start: 20180109
  5. CALCIUM CARBONATE\CHOLECALCIFEROL [Concomitant]
     Active Substance: CALCIUM CARBONATE\CHOLECALCIFEROL
     Indication: Calcium deficiency
     Dosage: 1 OT, BID
     Route: 042
     Dates: start: 20171228, end: 20180109
  6. ALENDRONIC ACID [Concomitant]
     Active Substance: ALENDRONIC ACID
     Indication: Product used for unknown indication
     Dosage: 70 MG, QD
     Route: 042
     Dates: start: 20180108, end: 20180108
  7. ALLOPURINOL [Concomitant]
     Active Substance: ALLOPURINOL
     Indication: Prophylaxis
     Dosage: 300 MG, QD
     Route: 042
     Dates: start: 20171219
  8. AMBISOME [Concomitant]
     Active Substance: AMPHOTERICIN B
     Indication: Sepsis
     Dosage: 200 MG OR 250 MG, QD
     Route: 041
     Dates: start: 20180110
  9. AMBISOME [Concomitant]
     Active Substance: AMPHOTERICIN B
     Indication: Fungal infection
  10. BISOPROLOL [Concomitant]
     Active Substance: BISOPROLOL\BISOPROLOL FUMARATE
     Indication: Hypertension
     Dosage: 5 MG, QD
     Route: 042
  11. CARBOXYMETHYLCELLULOSE [Concomitant]
     Active Substance: CARBOXYMETHYLCELLULOSE
     Indication: Eye pain
     Dosage: 1 DRP, BID
     Route: 055
     Dates: start: 20180105
  12. CARBOXYMETHYLCELLULOSE [Concomitant]
     Active Substance: CARBOXYMETHYLCELLULOSE
     Dosage: 1 DRP, BID
     Route: 065
     Dates: start: 20180105
  13. CHLORAMPHENICOL [Concomitant]
     Active Substance: CHLORAMPHENICOL
     Indication: Eye pain
     Dosage: 1 OT, QID
     Route: 055
     Dates: start: 20180105, end: 20180111
  14. DIGOXIN [Concomitant]
     Active Substance: DIGOXIN
     Indication: Cardiac disorder
     Dosage: 250 UG, QD
     Route: 042
  15. FLUCLOXACILLIN [Concomitant]
     Active Substance: FLUCLOXACILLIN
     Indication: Localised infection
     Dosage: 500 MG, TID
     Route: 042
     Dates: start: 20180105, end: 20180107
  16. GENTAMICIN [Concomitant]
     Active Substance: GENTAMICIN
     Indication: Sepsis
     Dosage: 360 MG, QD
     Route: 041
     Dates: start: 20180108, end: 20180108
  17. GENTAMICIN [Concomitant]
     Active Substance: GENTAMICIN
     Dosage: 360 MG, QD
     Route: 041
     Dates: start: 20180108, end: 20180108
  18. GENTAMICIN [Concomitant]
     Active Substance: GENTAMICIN
     Dosage: 360 MG, QD ROUTE OF ADMIN (FREE TEXT): INTRAVENOUS DRIP
     Route: 065
     Dates: start: 20180108, end: 20180108
  19. CALCIUM CHLORIDE\POTASSIUM CHLORIDE\SODIUM CHLORIDE\SODIUM LACTATE [Concomitant]
     Active Substance: CALCIUM CHLORIDE\POTASSIUM CHLORIDE\SODIUM CHLORIDE\SODIUM LACTATE
     Indication: Hypotension
     Dosage: 1 OT, PRN
     Route: 042
     Dates: start: 20180108, end: 20180110
  20. CALCIUM CHLORIDE\POTASSIUM CHLORIDE\SODIUM CHLORIDE\SODIUM LACTATE [Concomitant]
     Active Substance: CALCIUM CHLORIDE\POTASSIUM CHLORIDE\SODIUM CHLORIDE\SODIUM LACTATE
     Indication: Sepsis
  21. LANSOPRAZOLE [Concomitant]
     Active Substance: LANSOPRAZOLE
     Indication: Product used for unknown indication
     Dosage: 30 MG, QD
     Route: 042
  22. MEROPENEM [Concomitant]
     Active Substance: MEROPENEM
     Indication: Sepsis
     Dosage: 1 G, TID
     Route: 041
     Dates: start: 20180107
  23. METRONIDAZOLE [Concomitant]
     Active Substance: METRONIDAZOLE
     Dosage: 500 MG, TID
     Route: 041
     Dates: start: 20180105
  24. METRONIDAZOLE [Concomitant]
     Active Substance: METRONIDAZOLE
     Dosage: 500 MG, TID ROUTE OF ADMIN (FREE TEXT): INTRAVENOUS DRIP
     Route: 065
     Dates: start: 20180105
  25. METRONIDAZOLE [Concomitant]
     Active Substance: METRONIDAZOLE
     Indication: Abscess
     Dosage: 500 MG, TID
     Route: 041
     Dates: start: 20180105
  26. MORPHINE SULFATE [Concomitant]
     Active Substance: MORPHINE SULFATE
     Indication: Pain
     Dosage: 10 MG, PRN
     Route: 042
     Dates: start: 20171222
  27. ACETAMINOPHEN [Concomitant]
     Active Substance: ACETAMINOPHEN
     Indication: Pain
     Dosage: 1 G, PRN
     Route: 042
     Dates: start: 20180108
  28. ACETAMINOPHEN [Concomitant]
     Active Substance: ACETAMINOPHEN
     Indication: Pyrexia
  29. PREDNISOLONE [Concomitant]
     Active Substance: PREDNISOLONE
     Indication: Pyoderma gangrenosum
     Dosage: 5 MG, QD
     Route: 042
     Dates: start: 20171225, end: 20180108
  30. PREDNISOLONE [Concomitant]
     Active Substance: PREDNISOLONE
     Dosage: 5 MG, QD
     Route: 042
     Dates: start: 20180109
  31. SENNA [Concomitant]
     Active Substance: SENNA LEAF\SENNOSIDES\SENNOSIDES A AND B
     Indication: Constipation
     Dosage: 15 MG, QD
     Route: 042
     Dates: start: 20180103
  32. SPIRONOLACTONE [Concomitant]
     Active Substance: SPIRONOLACTONE
     Indication: Product used for unknown indication
     Dosage: 25 MG, QD
     Route: 042

REACTIONS (2)
  - Swelling [Recovered/Resolved with Sequelae]
  - Sialoadenitis [Recovered/Resolved]

NARRATIVE: CASE EVENT DATE: 20180107
